FAERS Safety Report 19168108 (Version 2)
Quarter: 2021Q2

REPORT INFORMATION
  Report Type: Spontaneous
  Country: PT (occurrence: PT)
  Receive Date: 20210422
  Receipt Date: 20210506
  Transmission Date: 20210717
  Serious: No
  Sender: FDA-Public Use
  Company Number: PT-PFIZER INC-2021399905

PATIENT
  Age: 51 Year
  Sex: Female

DRUGS (78)
  1. PALEXIA [Suspect]
     Active Substance: TAPENTADOL HYDROCHLORIDE
     Indication: SLEEP DISORDER
     Dosage: 50 MG
  2. PALEXIA [Suspect]
     Active Substance: TAPENTADOL HYDROCHLORIDE
     Indication: SKIN DISORDER
  3. THROMBOCID [PENTOSAN POLYSULFATE SODIUM] [Suspect]
     Active Substance: PENTOSAN POLYSULFATE SODIUM
     Indication: SKIN DISORDER
  4. PARACETAMOL ALTER [Suspect]
     Active Substance: ACETAMINOPHEN
     Indication: COMPLEX REGIONAL PAIN SYNDROME
     Dosage: UNK
  5. PARACETAMOL ALTER [Suspect]
     Active Substance: ACETAMINOPHEN
     Indication: SLEEP DISORDER
  6. DULOXETIN TEVA [Suspect]
     Active Substance: DULOXETINE HYDROCHLORIDE
     Indication: COMPLEX REGIONAL PAIN SYNDROME
     Dosage: UNK
  7. ROSILAN [Suspect]
     Active Substance: DEFLAZACORT
     Indication: COMPLEX REGIONAL PAIN SYNDROME
     Dosage: UNK
  8. TRENTAL [Suspect]
     Active Substance: PENTOXIFYLLINE
     Indication: SKIN DISORDER
  9. TARGIN [Suspect]
     Active Substance: NALOXONE HYDROCHLORIDE\OXYCODONE HYDROCHLORIDE
     Indication: SKIN DISORDER
  10. TRANSTEC [Suspect]
     Active Substance: BUPRENORPHINE
     Indication: SLEEP DISORDER
  11. IBURON [Suspect]
     Active Substance: IBUPROFEN
     Indication: COMPLEX REGIONAL PAIN SYNDROME
     Dosage: UNK
  12. VENLAFAXINE [Suspect]
     Active Substance: VENLAFAXINE HYDROCHLORIDE
     Indication: SLEEP DISORDER
  13. DEFLAZACORTE [Suspect]
     Active Substance: DEFLAZACORT
     Indication: SLEEP DISORDER
  14. EFEXOR XR [Suspect]
     Active Substance: VENLAFAXINE HYDROCHLORIDE
     Indication: SLEEP DISORDER
  15. FOSAVANCE [Suspect]
     Active Substance: ALENDRONATE SODIUM\CHOLECALCIFEROL
     Indication: COMPLEX REGIONAL PAIN SYNDROME
     Dosage: 70MG/5600UI
  16. NAPROSYN [Suspect]
     Active Substance: NAPROXEN
     Indication: SLEEP DISORDER
  17. ETORICOXIB MYLAN [Suspect]
     Active Substance: ETORICOXIB
     Indication: COMPLEX REGIONAL PAIN SYNDROME
     Dosage: UNK
  18. ETORICOXIB MYLAN [Suspect]
     Active Substance: ETORICOXIB
     Indication: SKIN DISORDER
  19. VENLAFAXINE SANDOZ [Suspect]
     Active Substance: VENLAFAXINE HYDROCHLORIDE
     Indication: SKIN DISORDER
  20. TRENTAL [Suspect]
     Active Substance: PENTOXIFYLLINE
     Indication: COMPLEX REGIONAL PAIN SYNDROME
     Dosage: UNK
  21. IBUPROFEN MYLAN [Suspect]
     Active Substance: IBUPROFEN
     Indication: SKIN DISORDER
  22. IBURON [Suspect]
     Active Substance: IBUPROFEN
     Indication: SKIN DISORDER
  23. DOLOCALMA [Suspect]
     Active Substance: METAMIZOLE MAGNESIUM
     Indication: COMPLEX REGIONAL PAIN SYNDROME
  24. DOLOCALMA [Suspect]
     Active Substance: METAMIZOLE MAGNESIUM
     Indication: SLEEP DISORDER
  25. DEFLAZACORTE [Suspect]
     Active Substance: DEFLAZACORT
     Indication: COMPLEX REGIONAL PAIN SYNDROME
  26. LYRICA [Suspect]
     Active Substance: PREGABALIN
     Indication: SKIN DISORDER
  27. FOSAVANCE [Suspect]
     Active Substance: ALENDRONATE SODIUM\CHOLECALCIFEROL
     Indication: SLEEP DISORDER
  28. NAPROSYN [Suspect]
     Active Substance: NAPROXEN
     Indication: SKIN DISORDER
  29. DULOXETIN TEVA [Suspect]
     Active Substance: DULOXETINE HYDROCHLORIDE
     Indication: SKIN DISORDER
  30. UNISEDIL [Suspect]
     Active Substance: DIAZEPAM
     Indication: SLEEP DISORDER
  31. DULOXETINE. [Suspect]
     Active Substance: DULOXETINE
     Indication: SKIN DISORDER
  32. TRANSTEC [Suspect]
     Active Substance: BUPRENORPHINE
     Indication: SKIN DISORDER
  33. IBURON [Suspect]
     Active Substance: IBUPROFEN
     Indication: SLEEP DISORDER
  34. EXXIV [Suspect]
     Active Substance: ETORICOXIB
     Indication: SKIN DISORDER
  35. PALEXIA [Suspect]
     Active Substance: TAPENTADOL HYDROCHLORIDE
     Indication: COMPLEX REGIONAL PAIN SYNDROME
     Dosage: 100 MG
  36. PARACETAMOL ALTER [Suspect]
     Active Substance: ACETAMINOPHEN
     Indication: SKIN DISORDER
  37. ETORICOXIB MYLAN [Suspect]
     Active Substance: ETORICOXIB
     Indication: SLEEP DISORDER
  38. DEFLAZACORTE [Suspect]
     Active Substance: DEFLAZACORT
     Indication: COMPLEX REGIONAL PAIN SYNDROME
     Dosage: UNK
  39. DEFLAZACORTE [Suspect]
     Active Substance: DEFLAZACORT
     Indication: SLEEP DISORDER
  40. DEFLAZACORTE [Suspect]
     Active Substance: DEFLAZACORT
     Indication: SKIN DISORDER
  41. VENLAFAXINE SANDOZ [Suspect]
     Active Substance: VENLAFAXINE HYDROCHLORIDE
     Indication: SLEEP DISORDER
  42. IBUPROFEN MYLAN [Suspect]
     Active Substance: IBUPROFEN
     Indication: COMPLEX REGIONAL PAIN SYNDROME
     Dosage: UNK
  43. ADT [Suspect]
     Active Substance: AMITRIPTYLINE HYDROCHLORIDE
     Indication: COMPLEX REGIONAL PAIN SYNDROME
     Dosage: 10 MG
  44. VENLAFAXINE [Suspect]
     Active Substance: VENLAFAXINE HYDROCHLORIDE
     Indication: COMPLEX REGIONAL PAIN SYNDROME
  45. DOLOCALMA [Suspect]
     Active Substance: METAMIZOLE MAGNESIUM
     Indication: SKIN DISORDER
  46. LYRICA [Suspect]
     Active Substance: PREGABALIN
     Indication: SLEEP DISORDER
     Dosage: 150 MG
  47. EXXIV [Suspect]
     Active Substance: ETORICOXIB
     Indication: SLEEP DISORDER
  48. THROMBOCID [PENTOSAN POLYSULFATE SODIUM] [Suspect]
     Active Substance: PENTOSAN POLYSULFATE SODIUM
     Indication: COMPLEX REGIONAL PAIN SYNDROME
  49. THROMBOCID [PENTOSAN POLYSULFATE SODIUM] [Suspect]
     Active Substance: PENTOSAN POLYSULFATE SODIUM
     Indication: SLEEP DISORDER
  50. TARGIN [Suspect]
     Active Substance: NALOXONE HYDROCHLORIDE\OXYCODONE HYDROCHLORIDE
     Indication: COMPLEX REGIONAL PAIN SYNDROME
     Dosage: UNK
  51. TARGIN [Suspect]
     Active Substance: NALOXONE HYDROCHLORIDE\OXYCODONE HYDROCHLORIDE
     Indication: SLEEP DISORDER
  52. TRITICUM AC [Suspect]
     Active Substance: TRAZODONE HYDROCHLORIDE
     Indication: SLEEP DISORDER
  53. EFEXOR XR [Suspect]
     Active Substance: VENLAFAXINE HYDROCHLORIDE
     Indication: COMPLEX REGIONAL PAIN SYNDROME
     Dosage: 150 MG, 1X/DAY
  54. EFEXOR XR [Suspect]
     Active Substance: VENLAFAXINE HYDROCHLORIDE
     Indication: SKIN DISORDER
  55. VENLAFAXINE SANDOZ [Suspect]
     Active Substance: VENLAFAXINE HYDROCHLORIDE
     Indication: COMPLEX REGIONAL PAIN SYNDROME
     Dosage: 150 MG, DAILY
  56. IBUPROFEN MYLAN [Suspect]
     Active Substance: IBUPROFEN
     Indication: SLEEP DISORDER
  57. DULOXETINE. [Suspect]
     Active Substance: DULOXETINE
     Indication: COMPLEX REGIONAL PAIN SYNDROME
     Dosage: 30 MG
  58. TRANSTEC [Suspect]
     Active Substance: BUPRENORPHINE
     Indication: COMPLEX REGIONAL PAIN SYNDROME
     Dosage: 37.5 MCG/H/ TRANSDERMAL
  59. TRITICUM AC [Suspect]
     Active Substance: TRAZODONE HYDROCHLORIDE
     Indication: COMPLEX REGIONAL PAIN SYNDROME
     Dosage: UNK
  60. VENLAFAXINE [Suspect]
     Active Substance: VENLAFAXINE HYDROCHLORIDE
     Indication: SKIN DISORDER
  61. NAPROSYN [Suspect]
     Active Substance: NAPROXEN
     Indication: COMPLEX REGIONAL PAIN SYNDROME
     Dosage: UNK
  62. ROSILAN [Suspect]
     Active Substance: DEFLAZACORT
     Indication: SLEEP DISORDER
  63. UNISEDIL [Suspect]
     Active Substance: DIAZEPAM
     Indication: COMPLEX REGIONAL PAIN SYNDROME
     Dosage: UNK
  64. UNISEDIL [Suspect]
     Active Substance: DIAZEPAM
     Indication: SKIN DISORDER
  65. ADT [Suspect]
     Active Substance: AMITRIPTYLINE HYDROCHLORIDE
     Indication: SKIN DISORDER
  66. TRITICUM AC [Suspect]
     Active Substance: TRAZODONE HYDROCHLORIDE
     Indication: SKIN DISORDER
  67. DEFLAZACORTE [Suspect]
     Active Substance: DEFLAZACORT
     Indication: SKIN DISORDER
  68. LYRICA [Suspect]
     Active Substance: PREGABALIN
     Indication: COMPLEX REGIONAL PAIN SYNDROME
     Dosage: 75 MG
  69. EXXIV [Suspect]
     Active Substance: ETORICOXIB
     Indication: COMPLEX REGIONAL PAIN SYNDROME
     Dosage: UNK
  70. FOSAVANCE [Suspect]
     Active Substance: ALENDRONATE SODIUM\CHOLECALCIFEROL
     Indication: SKIN DISORDER
  71. DULOXETIN TEVA [Suspect]
     Active Substance: DULOXETINE HYDROCHLORIDE
     Indication: SLEEP DISORDER
  72. NORTRIPTYLINE [Suspect]
     Active Substance: NORTRIPTYLINE
     Indication: COMPLEX REGIONAL PAIN SYNDROME
     Dosage: UNK
  73. NORTRIPTYLINE [Suspect]
     Active Substance: NORTRIPTYLINE
     Indication: SLEEP DISORDER
  74. NORTRIPTYLINE [Suspect]
     Active Substance: NORTRIPTYLINE
     Indication: SKIN DISORDER
  75. ROSILAN [Suspect]
     Active Substance: DEFLAZACORT
     Indication: SKIN DISORDER
  76. TRENTAL [Suspect]
     Active Substance: PENTOXIFYLLINE
     Indication: SLEEP DISORDER
  77. DULOXETINE. [Suspect]
     Active Substance: DULOXETINE
     Indication: SLEEP DISORDER
     Dosage: 60 MG
  78. ADT [Suspect]
     Active Substance: AMITRIPTYLINE HYDROCHLORIDE
     Indication: SLEEP DISORDER
     Dosage: 25 MG

REACTIONS (1)
  - Diarrhoea [Unknown]
